FAERS Safety Report 23221873 (Version 1)
Quarter: 2023Q4

REPORT INFORMATION
  Report Type: Spontaneous
  Country: US (occurrence: US)
  Receive Date: 20231123
  Receipt Date: 20231123
  Transmission Date: 20240109
  Serious: Yes (Hospitalization)
  Sender: FDA-Public Use
  Company Number: US-TEVA-2023-US-2946908

PATIENT
  Age: 57 Year
  Sex: Female

DRUGS (7)
  1. TRIAMCINOLONE [Suspect]
     Active Substance: TRIAMCINOLONE
     Indication: Urticaria
     Route: 065
  2. HYDROXYZINE [Suspect]
     Active Substance: HYDROXYZINE HYDROCHLORIDE
     Indication: Urticaria
     Route: 065
  3. MIDOSTAURIN [Suspect]
     Active Substance: MIDOSTAURIN
     Indication: Systemic mastocytosis
     Dosage: 50 MILLIGRAM DAILY; FOR 1 MONTH
     Route: 048
  4. DASATINIB [Suspect]
     Active Substance: DASATINIB
     Indication: Systemic mastocytosis
     Dosage: 100 MILLIGRAM DAILY;
     Route: 048
  5. RIPRETINIB [Suspect]
     Active Substance: RIPRETINIB
     Indication: Systemic mastocytosis
     Route: 048
  6. RIPRETINIB [Suspect]
     Active Substance: RIPRETINIB
     Route: 048
  7. HYDROXYUREA [Concomitant]
     Active Substance: HYDROXYUREA
     Indication: Myeloproliferative neoplasm
     Dosage: 500 MILLIGRAM DAILY;
     Route: 048

REACTIONS (6)
  - Gastrointestinal disorder [Unknown]
  - Back pain [Unknown]
  - Headache [Unknown]
  - Non-scarring alopecia [Unknown]
  - Drug ineffective [Unknown]
  - Off label use [Unknown]
